FAERS Safety Report 6706022-X (Version None)
Quarter: 2010Q2

REPORT INFORMATION
  Report Type: 
  Country: None (occurrence: None)
  Receive Date: 20100503
  Receipt Date: 20100422
  Transmission Date: 20101027
  Serious: Yes (Hospitalization)
  Sender: FDA-Public Use
  Company Number: JP-JNJFOC-20100407091

PATIENT
  Age: 76 Year
  Sex: Male

DRUGS (1)
  1. REMICADE [Suspect]
     Indication: PSORIASIS
     Dosage: RECEIVED 8 INFUSIONS AT WEEK 0, 2, 6 THEN EVERY 8 WEEKS
     Route: 042

REACTIONS (1)
  - PROSTATE CANCER STAGE II [None]
